FAERS Safety Report 8802464 (Version 1)
Quarter: 2012Q4

REPORT INFORMATION
  Report Type: 
  Country: SD (occurrence: SD)
  Receive Date: 20120921
  Receipt Date: 20120921
  Transmission Date: 20130627
  Serious: Yes (Death, Other)
  Sender: FDA-Public Use
  Company Number: PHHY2008SD044159

PATIENT
  Sex: Male

DRUGS (1)
  1. GLIVEC [Suspect]
     Indication: CHRONIC MYELOID LEUKAEMIA
     Dates: start: 20071217

REACTIONS (4)
  - Cardiac failure [Fatal]
  - Anaemia [Unknown]
  - Thrombocytopenia [Unknown]
  - Chronic myeloid leukaemia transformation [Unknown]
